FAERS Safety Report 9257483 (Version 1)
Quarter: 2013Q1

REPORT INFORMATION
  Report Type: Spontaneous
  Country: US (occurrence: None)
  Receive Date: 20121212
  Receipt Date: 20121212
  Transmission Date: 20140127
  Serious: No
  Sender: FDA-Public Use
  Company Number: 1207USA000816

PATIENT
  Age: 66 Year
  Sex: Male

DRUGS (4)
  1. VICTRELIS [Suspect]
     Indication: HEPATITIS C
     Dates: start: 201203, end: 20120510
  2. RIBAPAK [Suspect]
  3. PEGASYS [Suspect]
  4. SIMVASTATIN [Concomitant]

REACTIONS (1)
  - Anaemia [None]
